FAERS Safety Report 6255650-7 (Version None)
Quarter: 2009Q3

REPORT INFORMATION
  Report Type: 
  Country: None (occurrence: None)
  Receive Date: 20090701
  Receipt Date: 20090619
  Transmission Date: 20100115
  Serious: Yes (Other)
  Sender: FDA-Public Use
  Company Number: 2009US002500

PATIENT

DRUGS (5)
  1. PROGRAF [Suspect]
     Indication: LIVER TRANSPLANT
  2. THYMOGLOBULIN [Concomitant]
  3. MYCOPHENOLATE MOFETIL [Concomitant]
  4. CORTICOSTEROID NOS (CORTICOSTEROID NOS) [Concomitant]
  5. GANCICLOVIR [Concomitant]

REACTIONS (4)
  - GASTROINTESTINAL NECROSIS [None]
  - GRAFT LOSS [None]
  - NECROSIS ISCHAEMIC [None]
  - SEPTIC SHOCK [None]
